FAERS Safety Report 18079002 (Version 1)
Quarter: 2020Q3

REPORT INFORMATION
  Report Type: Spontaneous
  Country: US (occurrence: US)
  Receive Date: 20200727
  Receipt Date: 20200727
  Transmission Date: 20201103
  Serious: No
  Sender: FDA-Public Use
  Company Number: None

PATIENT
  Age: 63 Year
  Sex: Female
  Weight: 59.42 kg

DRUGS (8)
  1. CALCIUM 600 [Concomitant]
     Active Substance: CALCIUM
  2. ONDANSETRON HCL [Concomitant]
     Active Substance: ONDANSETRON HYDROCHLORIDE
  3. SANCUSO [Suspect]
     Active Substance: GRANISETRON
     Indication: COLON CANCER
     Dosage: ?          OTHER FREQUENCY:EVERY 7 DAYS;?
     Route: 062
     Dates: start: 20200701, end: 20200727
  4. ENTECAVIR. [Concomitant]
     Active Substance: ENTECAVIR
  5. VITAMIN C [Concomitant]
     Active Substance: ASCORBIC ACID
  6. CYPROHEPTADINE HCL [Concomitant]
     Active Substance: CYPROHEPTADINE HYDROCHLORIDE
  7. PEPTO?BISMOL [Concomitant]
     Active Substance: BISMUTH SUBSALICYLATE
  8. VITAMIN D [Concomitant]
     Active Substance: VITAMIN D NOS

REACTIONS (1)
  - Death [None]

NARRATIVE: CASE EVENT DATE: 20200727
